FAERS Safety Report 25145841 (Version 1)
Quarter: 2025Q2

REPORT INFORMATION
  Report Type: Report from Study
  Country: US (occurrence: US)
  Receive Date: 20250401
  Receipt Date: 20250401
  Transmission Date: 20250717
  Serious: Yes (Other)
  Sender: UCB
  Company Number: US-UCBSA-2025018256

PATIENT
  Age: 27 Year
  Sex: Female
  Weight: 64 kg

DRUGS (1)
  1. FINTEPLA [Suspect]
     Active Substance: FENFLURAMINE
     Indication: Product used for unknown indication
     Dates: start: 202407

REACTIONS (2)
  - Tricuspid valve incompetence [Unknown]
  - Off label use [Unknown]

NARRATIVE: CASE EVENT DATE: 20240701
